FAERS Safety Report 5495163-3 (Version None)
Quarter: 2007Q4

REPORT INFORMATION
  Report Type: 
  Country: None (occurrence: None)
  Receive Date: 20071024
  Receipt Date: 20071023
  Transmission Date: 20080405
  Serious: Yes (Death)
  Sender: FDA-Public Use
  Company Number: US-BOEHRINGER INGELHEIM PHARMACEUTICALS, INC.-2007-BP-18595BP

PATIENT
  Age: 96 Year
  Sex: Female
  Weight: 40 kg

DRUGS (6)
  1. SPIRIVA [Suspect]
  2. SYNTHROID [Concomitant]
     Dates: start: 20070702
  3. ADVAIR DISKUS 100/50 [Concomitant]
     Dates: start: 20070702
  4. LEVAQUIN [Concomitant]
     Dates: start: 20070702, end: 20070710
  5. BUMEX [Concomitant]
     Dates: start: 20070702
  6. K-DUR 10 [Concomitant]
     Dates: start: 20070702

REACTIONS (1)
  - DEATH [None]
